FAERS Safety Report 25407832 (Version 1)
Quarter: 2025Q2

REPORT INFORMATION
  Report Type: Spontaneous
  Country: ES (occurrence: ES)
  Receive Date: 20250606
  Receipt Date: 20250606
  Transmission Date: 20250716
  Serious: Yes (Other)
  Sender: SANDOZ
  Company Number: ES-ASTELLAS-2022US002132

PATIENT
  Age: 27 Year
  Sex: Female

DRUGS (3)
  1. MYCOPHENOLATE MOFETIL [Suspect]
     Active Substance: MYCOPHENOLATE MOFETIL
     Dosage: 250 MG, EVERY 12 HOURS (LOWERED DOSE)
     Route: 065
     Dates: start: 201612
  2. MYCOPHENOLATE MOFETIL [Suspect]
     Active Substance: MYCOPHENOLATE MOFETIL
     Indication: Immunosuppression
     Route: 065
     Dates: start: 200904
  3. TACROLIMUS [Suspect]
     Active Substance: TACROLIMUS
     Indication: Immunosuppression
     Route: 065
     Dates: start: 200904

REACTIONS (13)
  - Transplant rejection [Unknown]
  - Urosepsis [Unknown]
  - Polyomavirus viraemia [Recovered/Resolved]
  - Cytomegalovirus infection [Unknown]
  - Renal impairment [Unknown]
  - Pneumonia [Unknown]
  - Renal failure [Unknown]
  - Neutropenia [Unknown]
  - Genital herpes [Unknown]
  - Viruria [Recovered/Resolved]
  - Toxicity to various agents [Unknown]
  - Anogenital warts [Unknown]
  - Urinary tract infection [Unknown]

NARRATIVE: CASE EVENT DATE: 20090401
